FAERS Safety Report 5216970-8 (Version None)
Quarter: 2007Q1

REPORT INFORMATION
  Report Type: 
  Country: None (occurrence: None)
  Receive Date: 20070124
  Receipt Date: 20070112
  Transmission Date: 20070707
  Serious: Yes (Death, Life-Threatening, Other)
  Sender: FDA-Public Use
  Company Number: FR-BRISTOL-MYERS SQUIBB COMPANY-13651112

PATIENT
  Age: 39 Year
  Sex: Male

DRUGS (17)
  1. ENDOXAN [Suspect]
     Indication: BURKITT'S LYMPHOMA
     Route: 042
     Dates: start: 20061124, end: 20061125
  2. ONCOVIN [Suspect]
     Indication: BURKITT'S LYMPHOMA
     Route: 042
     Dates: start: 20061124, end: 20061124
  3. CORTANCYL [Concomitant]
     Dates: start: 20061124
  4. TRUVADA [Concomitant]
  5. TRIFLUCAN [Concomitant]
  6. BACTRIM [Concomitant]
  7. OCTREOTIDE ACETATE [Concomitant]
  8. ZOVIRAX [Concomitant]
  9. ELITEK [Concomitant]
  10. INIPOMP [Concomitant]
  11. NEFOPAM HCL [Concomitant]
  12. ZOLPIDEM TARTRATE [Concomitant]
  13. ALUMINUM HYDROXIDE AND MAGNESIUM TRISILICATE [Concomitant]
  14. VANCOMYCIN [Concomitant]
  15. CIPROFLOXACIN [Concomitant]
  16. FORTUM [Concomitant]
  17. ROVALCYTE [Concomitant]

REACTIONS (5)
  - DEATH [None]
  - PANCYTOPENIA [None]
  - RASH [None]
  - RENAL FAILURE ACUTE [None]
  - TUMOUR LYSIS SYNDROME [None]
